FAERS Safety Report 19372629 (Version 1)
Quarter: 2021Q2

REPORT INFORMATION
  Report Type: Spontaneous
  Country: US (occurrence: US)
  Receive Date: 20210604
  Receipt Date: 20210604
  Transmission Date: 20210717
  Serious: Yes (Other)
  Sender: FDA-Public Use
  Company Number: US-ASTRAZENECA-2021A488284

PATIENT
  Sex: Female
  Weight: 90.7 kg

DRUGS (1)
  1. LYNPARZA [Suspect]
     Active Substance: OLAPARIB
     Indication: OVARIAN CANCER
     Dosage: (2 IN THE MORNING AND 2 AT NIGHT
     Route: 048
     Dates: start: 20210203

REACTIONS (7)
  - Fatigue [Unknown]
  - Nausea [Unknown]
  - Malignant neoplasm progression [Unknown]
  - Illness [Unknown]
  - Diarrhoea [Unknown]
  - Asthenia [Unknown]
  - Pollakiuria [Unknown]
